FAERS Safety Report 12621282 (Version 3)
Quarter: 2016Q3

REPORT INFORMATION
  Report Type: Spontaneous
  Country: US (occurrence: US)
  Receive Date: 20160804
  Receipt Date: 20160923
  Transmission Date: 20161109
  Serious: No
  Sender: FDA-Public Use
  Company Number: US-PFIZER INC-2016363381

PATIENT
  Age: 62 Year
  Sex: Female

DRUGS (13)
  1. XANAX [Concomitant]
     Active Substance: ALPRAZOLAM
     Dosage: UNK
  2. IBUPROFEN. [Concomitant]
     Active Substance: IBUPROFEN
     Dosage: UNK
  3. DONEPEZIL HCL [Concomitant]
     Active Substance: DONEPEZIL HYDROCHLORIDE
     Dosage: UNK
  4. SUTENT [Suspect]
     Active Substance: SUNITINIB MALATE
     Indication: RENAL CANCER METASTATIC
     Dosage: 50 MG, CYCLIC (DAILY FOR 2 WEEKS AND 1 WEEK OFF) [1 CAP PO QD X 2 WEEKS ON, THEN 1 WEEK OFF]
     Route: 048
  5. LANTUS [Concomitant]
     Active Substance: INSULIN GLARGINE
     Dosage: UNK
  6. ALOE VERA [Concomitant]
     Active Substance: ALOE VERA LEAF
     Dosage: UNK
  7. FENTANYL. [Concomitant]
     Active Substance: FENTANYL
     Dosage: UNK
  8. PRAVASTATIN SODIUM. [Concomitant]
     Active Substance: PRAVASTATIN SODIUM
     Dosage: UNK
  9. NORVASC [Concomitant]
     Active Substance: AMLODIPINE BESYLATE
     Dosage: UNK
  10. PERCOCET [Concomitant]
     Active Substance: ACETAMINOPHEN\OXYCODONE HYDROCHLORIDE
     Dosage: UNK
  11. SIMETHICONE (DIMETHICONE) [Concomitant]
     Active Substance: DIMETHICONE
     Dosage: UNK
  12. AMITIZA [Concomitant]
     Active Substance: LUBIPROSTONE
     Dosage: UNK
  13. COLACE [Concomitant]
     Active Substance: DOCUSATE SODIUM
     Dosage: UNK

REACTIONS (11)
  - Dyspnoea [Unknown]
  - Anxiety [Unknown]
  - Mouth ulceration [Unknown]
  - Back pain [Unknown]
  - Hypotension [Unknown]
  - Depression [Unknown]
  - Oral pain [Unknown]
  - Pain [Unknown]
  - Nausea [Unknown]
  - Chest pain [Unknown]
  - Stomatitis [Unknown]
